FAERS Safety Report 8447475-9 (Version None)
Quarter: 2012Q2

REPORT INFORMATION
  Report Type: 
  Country: None (occurrence: None)
  Receive Date: 20120612
  Receipt Date: 20120529
  Transmission Date: 20120825
  Serious: Yes (Other)
  Sender: FDA-Public Use
  Company Number: 2012-002033

PATIENT
  Age: 76 Year
  Sex: Female
  Weight: 75.2 kg

DRUGS (2)
  1. NORVASC [Concomitant]
  2. ACTONEL [Suspect]
     Dosage: 35 MG ONCE WEEKLY, ORAL
     Route: 048

REACTIONS (5)
  - BONE PAIN [None]
  - PAIN IN EXTREMITY [None]
  - GAIT DISTURBANCE [None]
  - PAIN [None]
  - INSOMNIA [None]
